FAERS Safety Report 19517622 (Version 2)
Quarter: 2021Q3

REPORT INFORMATION
  Report Type: Report from Study
  Country: US (occurrence: US)
  Receive Date: 20210712
  Receipt Date: 20210719
  Transmission Date: 20211014
  Serious: No
  Sender: FDA-Public Use
  Company Number: US-SA-2021SA226064

PATIENT
  Age: 62 Year
  Sex: Female

DRUGS (11)
  1. DUPIXENT [Suspect]
     Active Substance: DUPILUMAB
     Indication: ASTHMA
     Dosage: 300 MG, QOW
     Route: 058
     Dates: start: 20200820
  2. CLINDAMYCIN. [Concomitant]
     Active Substance: CLINDAMYCIN
  3. DUPIXENT [Suspect]
     Active Substance: DUPILUMAB
     Indication: CHRONIC SINUSITIS
     Dosage: 300 MG, QOW
     Dates: start: 20210623
  4. DUPIXENT [Suspect]
     Active Substance: DUPILUMAB
     Indication: ASTHMA
  5. DUPIXENT [Suspect]
     Active Substance: DUPILUMAB
     Indication: CHRONIC SINUSITIS
     Dosage: 600 MG, 1X
     Route: 058
     Dates: start: 20200806, end: 20200806
  6. DUPIXENT [Suspect]
     Active Substance: DUPILUMAB
     Indication: CHRONIC SINUSITIS
     Dosage: 600 MG, 1X
     Route: 058
     Dates: start: 20200806, end: 20200806
  7. DUPIXENT [Suspect]
     Active Substance: DUPILUMAB
     Indication: ASTHMA
     Dosage: 300 MG, QOW
     Route: 058
     Dates: start: 20200820
  8. DUPIXENT [Suspect]
     Active Substance: DUPILUMAB
     Indication: ASTHMA
  9. DUPIXENT [Suspect]
     Active Substance: DUPILUMAB
     Indication: CHRONIC SINUSITIS
     Dosage: 300 MG, QOW
     Dates: start: 20210623
  10. ZITHROMAX [Concomitant]
     Active Substance: AZITHROMYCIN DIHYDRATE
     Dosage: UNK
  11. BIAXIN [Concomitant]
     Active Substance: CLARITHROMYCIN

REACTIONS (7)
  - Sinusitis [Recovered/Resolved]
  - Paranasal sinus discomfort [Not Recovered/Not Resolved]
  - Asthma [Recovered/Resolved]
  - Wheezing [Not Recovered/Not Resolved]
  - Product use issue [Unknown]
  - Product use in unapproved indication [Unknown]
  - Injection site reaction [Unknown]

NARRATIVE: CASE EVENT DATE: 202008
